FAERS Safety Report 7951358-8 (Version None)
Quarter: 2011Q4

REPORT INFORMATION
  Report Type: 
  Country: None (occurrence: None)
  Receive Date: 20111201
  Receipt Date: 20111123
  Transmission Date: 20120403
  Serious: Yes (Hospitalization)
  Sender: FDA-Public Use
  Company Number: DK-JNJFOC-20111104691

PATIENT
  Sex: Male
  Weight: 81 kg

DRUGS (31)
  1. DOXORUBICIN HCL [Suspect]
     Indication: DIFFUSE LARGE B-CELL LYMPHOMA
     Route: 042
     Dates: start: 20110628
  2. DOXORUBICIN HCL [Suspect]
     Route: 042
     Dates: start: 20110803
  3. RITUXIMAB [Suspect]
     Route: 042
     Dates: start: 20110426
  4. MORPHINE [Concomitant]
     Indication: PAIN
     Route: 048
  5. CYCLOPHOSPHAMIDE [Suspect]
     Indication: DIFFUSE LARGE B-CELL LYMPHOMA
     Route: 042
     Dates: start: 20110803
  6. PREDNISONE [Suspect]
     Route: 048
     Dates: start: 20110803
  7. FUROSEMIDE [Concomitant]
     Indication: POLYURIA
     Route: 048
  8. CYCLOPHOSPHAMIDE [Suspect]
     Route: 042
     Dates: start: 20110628
  9. PREDNISONE [Suspect]
     Indication: DIFFUSE LARGE B-CELL LYMPHOMA
     Route: 048
     Dates: start: 20110426
  10. VINCRISTINE [Suspect]
     Route: 042
     Dates: start: 20110628
  11. ALLOPURINOL [Concomitant]
     Indication: PROPHYLAXIS
     Route: 048
     Dates: start: 20110412, end: 20110708
  12. AMLODIPINE [Concomitant]
     Indication: HYPERTENSION
     Route: 048
  13. LACTULOSE [Concomitant]
     Indication: CONSTIPATION
     Route: 048
  14. SENNOSIDE [Concomitant]
     Indication: PRODUCT USED FOR UNKNOWN INDICATION
     Route: 065
  15. NEUPOGEN [Suspect]
     Route: 058
     Dates: start: 20110629
  16. VINCRISTINE [Suspect]
     Route: 042
     Dates: start: 20110803
  17. ACYCLOVIR [Concomitant]
     Indication: PROPHYLAXIS
     Route: 048
     Dates: start: 20110412
  18. MOVIPREP [Concomitant]
     Indication: CONSTIPATION
     Route: 065
  19. NEUPOGEN [Suspect]
     Indication: DIFFUSE LARGE B-CELL LYMPHOMA
     Route: 058
     Dates: start: 20110427
  20. PREDNISONE [Suspect]
     Route: 048
     Dates: start: 20110628
  21. LANSOPRAZOLE [Concomitant]
     Indication: PROPHYLAXIS
     Route: 048
  22. DOXORUBICIN HCL [Suspect]
     Route: 042
     Dates: start: 20110426
  23. CYCLOPHOSPHAMIDE [Suspect]
     Route: 042
     Dates: start: 20110426
  24. RITUXIMAB [Suspect]
     Indication: DIFFUSE LARGE B-CELL LYMPHOMA
     Route: 042
     Dates: start: 20110503
  25. RITUXIMAB [Suspect]
     Route: 042
     Dates: start: 20110803
  26. RITUXIMAB [Suspect]
     Route: 042
     Dates: start: 20110628
  27. SULFAMETHOXAZOL AND TRIMETHOPRIM [Concomitant]
     Indication: PROPHYLAXIS
     Route: 048
     Dates: start: 20110628
  28. NEUPOGEN [Suspect]
     Route: 058
     Dates: start: 20110804
  29. RITUXIMAB [Suspect]
     Route: 042
     Dates: start: 20110702
  30. VINCRISTINE [Suspect]
     Indication: DIFFUSE LARGE B-CELL LYMPHOMA
     Route: 042
     Dates: start: 20110426
  31. ENOXAPARIN SODIUM [Concomitant]
     Indication: PAIN
     Route: 058
     Dates: start: 20110826

REACTIONS (5)
  - PULMONARY EMBOLISM [None]
  - FEBRILE NEUTROPENIA [None]
  - PNEUMONIA [None]
  - PYREXIA [None]
  - MUSCLE RUPTURE [None]
